FAERS Safety Report 6385807-6 (Version None)
Quarter: 2009Q3

REPORT INFORMATION
  Report Type: 
  Country: None (occurrence: None)
  Receive Date: 20090929
  Receipt Date: 20090603
  Transmission Date: 20100115
  Serious: Yes (Hospitalization, Other)
  Sender: FDA-Public Use
  Company Number: LMI-2009-00131

PATIENT
  Age: 47 Year
  Sex: Male
  Weight: 157.8518 kg

DRUGS (3)
  1. DEFINITY [Suspect]
     Indication: ECHOCARDIOGRAM
     Dosage: 1.3 ML OF DEFINITY DILUTED WITH 8.7 ML NORMAL SALINE (3.2 ML), INTRAVENOUS
     Route: 042
     Dates: start: 20090603, end: 20090603
  2. LISINOPRIL [Concomitant]
  3. CELEBREX [Concomitant]

REACTIONS (13)
  - ANAPHYLACTOID REACTION [None]
  - CHEST DISCOMFORT [None]
  - DIZZINESS [None]
  - DYSPNOEA [None]
  - FLUSHING [None]
  - HYPERHIDROSIS [None]
  - HYPOTENSION [None]
  - OCULAR HYPERAEMIA [None]
  - PARAESTHESIA [None]
  - RASH [None]
  - SPEECH DISORDER [None]
  - VISION BLURRED [None]
  - WHEEZING [None]
